FAERS Safety Report 6235358-4 (Version None)
Quarter: 2009Q2

REPORT INFORMATION
  Report Type: 
  Country: None (occurrence: None)
  Receive Date: 20090615
  Receipt Date: 20090521
  Transmission Date: 20091009
  Serious: Yes (Hospitalization)
  Sender: FDA-Public Use
  Company Number: 2009-197179-NL

PATIENT
  Age: 52 Year
  Sex: Male

DRUGS (7)
  1. DEXAMETHASONE [Suspect]
     Indication: MULTIPLE MYELOMA
     Dosage: 20 MG
     Dates: start: 20080818, end: 20090223
  2. BORTEZOMIB [Suspect]
     Indication: MULTIPLE MYELOMA
     Dosage: DF
     Dates: start: 20081031, end: 20090226
  3. ACYCLOVIR [Concomitant]
  4. ALLOPURINOL [Concomitant]
  5. CLODRONATE DISODIUM [Concomitant]
  6. ENOXAPARIN SODIUM [Concomitant]
  7. ONDANSETRON [Concomitant]

REACTIONS (2)
  - ABASIA [None]
  - NEUROPATHY PERIPHERAL [None]
